FAERS Safety Report 21411197 (Version 1)
Quarter: 2022Q4

REPORT INFORMATION
  Report Type: Spontaneous
  Country: FR (occurrence: FR)
  Receive Date: 20221005
  Receipt Date: 20221005
  Transmission Date: 20230113
  Serious: Yes (Other)
  Sender: FDA-Public Use
  Company Number: FR-NOVARTISPH-NVSC2022FR221631

PATIENT
  Age: 50 Year
  Sex: Female

DRUGS (1)
  1. MYCOPHENOLATE MOFETIL [Suspect]
     Active Substance: MYCOPHENOLATE MOFETIL
     Indication: Systemic lupus erythematosus
     Dosage: UNK
     Route: 065

REACTIONS (4)
  - Disseminated toxoplasmosis [Recovering/Resolving]
  - Eye infection toxoplasmal [Recovering/Resolving]
  - Cerebral toxoplasmosis [Recovering/Resolving]
  - Product use in unapproved indication [Unknown]
